FAERS Safety Report 5053912-2 (Version None)
Quarter: 2006Q3

REPORT INFORMATION
  Report Type: 
  Country: None (occurrence: None)
  Receive Date: 20060718
  Receipt Date: 20060713
  Transmission Date: 20061208
  Serious: Yes (Hospitalization)
  Sender: FDA-Public Use
  Company Number: SE-JNJFOC-20060702535

PATIENT
  Age: 55 Year
  Sex: Female

DRUGS (10)
  1. TOPAMAX [Suspect]
     Indication: MIGRAINE WITHOUT AURA
     Route: 048
  2. COZAAR [Suspect]
     Indication: ESSENTIAL HYPERTENSION
     Route: 048
  3. NEXIUM [Concomitant]
     Route: 065
  4. LIPITOR [Concomitant]
     Route: 065
  5. ASASANTIN [Concomitant]
     Route: 065
  6. LASIX [Concomitant]
     Route: 065
  7. XANOR [Concomitant]
     Route: 065
  8. AMILORID [Concomitant]
     Route: 065
  9. CIPRAMIL [Concomitant]
     Route: 065
  10. NARAMIG [Concomitant]
     Route: 065

REACTIONS (1)
  - NEPHRITIS INTERSTITIAL [None]
